FAERS Safety Report 10213636 (Version 2)
Quarter: 2014Q2

REPORT INFORMATION
  Report Type: Spontaneous
  Country: JP (occurrence: JP)
  Receive Date: 20140603
  Receipt Date: 20140603
  Transmission Date: 20141212
  Serious: Yes (Disabling, Other)
  Sender: FDA-Public Use
  Company Number: JP-TAKEDA-0239592

PATIENT
  Age: 65 Year
  Sex: Male

DRUGS (4)
  1. TACHOSIL [Suspect]
     Indication: PROPHYLAXIS
     Dosage: UNK
     Route: 050
     Dates: start: 20130307, end: 20130307
  2. CEFMETAZOLE [Concomitant]
     Indication: INFECTION PROPHYLAXIS
     Dosage: 1 G, BID
     Dates: start: 20130307, end: 20130310
  3. OMEPRAZOLE [Concomitant]
     Indication: PROPHYLAXIS AGAINST GASTROINTESTINAL ULCER
     Dosage: 20 MG, BID
     Dates: start: 20130307, end: 20130310
  4. BERIPLAST P [Concomitant]
     Indication: HAEMOSTASIS
     Dosage: 3 ML, QD
     Dates: start: 20130307, end: 20130307

REACTIONS (1)
  - Ileus [Recovered/Resolved]
